FAERS Safety Report 13011332 (Version 1)
Quarter: 2016Q4

REPORT INFORMATION
  Report Type: Other
  Country: IN (occurrence: IN)
  Receive Date: 20161209
  Receipt Date: 20161209
  Transmission Date: 20170207
  Serious: Yes (Other)
  Sender: FDA-Public Use
  Company Number: IN-LUPIN PHARMACEUTICALS INC.-2016-04768

PATIENT
  Age: 28 Year
  Sex: Male

DRUGS (14)
  1. STREPTOMYCIN [Concomitant]
     Active Substance: STREPTOMYCIN\STREPTOMYCIN SULFATE
     Indication: PULMONARY TUBERCULOSIS
  2. ISONIAZID. [Concomitant]
     Active Substance: ISONIAZID
     Route: 065
  3. ETHAMBUTOL [Concomitant]
     Active Substance: ETHAMBUTOL HYDROCHLORIDE
     Indication: PULMONARY TUBERCULOSIS
     Route: 065
  4. ETHAMBUTOL [Concomitant]
     Active Substance: ETHAMBUTOL HYDROCHLORIDE
     Route: 065
  5. RIFAMPIN. [Suspect]
     Active Substance: RIFAMPIN
     Indication: PULMONARY TUBERCULOSIS
     Route: 065
  6. ISONIAZID. [Concomitant]
     Active Substance: ISONIAZID
     Indication: PULMONARY TUBERCULOSIS
     Route: 065
  7. PYRAZINAMIDE. [Concomitant]
     Active Substance: PYRAZINAMIDE
     Route: 065
  8. ETHAMBUTOL [Concomitant]
     Active Substance: ETHAMBUTOL HYDROCHLORIDE
     Route: 065
  9. ISONIAZID. [Concomitant]
     Active Substance: ISONIAZID
     Route: 065
  10. PYRAZINAMIDE. [Concomitant]
     Active Substance: PYRAZINAMIDE
     Indication: PULMONARY TUBERCULOSIS
     Route: 065
  11. STREPTOMYCIN [Concomitant]
     Active Substance: STREPTOMYCIN\STREPTOMYCIN SULFATE
  12. RIFAMPIN. [Suspect]
     Active Substance: RIFAMPIN
     Route: 065
  13. RIFAMPIN. [Suspect]
     Active Substance: RIFAMPIN
     Route: 065
  14. PYRAZINAMIDE. [Concomitant]
     Active Substance: PYRAZINAMIDE
     Route: 065

REACTIONS (1)
  - Hepatitis [Recovered/Resolved]
